FAERS Safety Report 15743723 (Version 1)
Quarter: 2018Q4

REPORT INFORMATION
  Report Type: Report from Study
  Country: US (occurrence: US)
  Receive Date: 20181220
  Receipt Date: 20181220
  Transmission Date: 20190205
  Serious: Yes (Hospitalization, Other)
  Sender: FDA-Public Use
  Company Number: US-ROCHE-2228542

PATIENT
  Age: 52 Year
  Sex: Female
  Weight: 87.17 kg

DRUGS (6)
  1. OCREVUS [Suspect]
     Active Substance: OCRELIZUMAB
     Indication: RELAPSING MULTIPLE SCLEROSIS
     Dosage: SPLIT DOSES ;ONGOING: YES
     Route: 065
     Dates: start: 20180628
  2. ASPIRIN. [Concomitant]
     Active Substance: ASPIRIN
     Dosage: ONGOING: YES
     Route: 065
  3. OCREVUS [Suspect]
     Active Substance: OCRELIZUMAB
     Route: 065
     Dates: start: 20180712
  4. LYRICA [Suspect]
     Active Substance: PREGABALIN
     Dosage: INITIAL DOSE; STOPPED WHILE IN THE HOSPITAL ;ONGOING: NO
     Route: 065
  5. BACLOFEN. [Concomitant]
     Active Substance: BACLOFEN
     Dosage: ONGOING: YES
     Route: 065
  6. LYRICA [Suspect]
     Active Substance: PREGABALIN
     Indication: PRODUCT USED FOR UNKNOWN INDICATION
     Dosage: RESTARTED DOSE AFTER HOSPITALIZATION ;ONGOING: NO
     Route: 065

REACTIONS (9)
  - Delusion [Recovered/Resolved]
  - Sepsis [Recovered/Resolved]
  - Dehydration [Recovered/Resolved]
  - Muscle spasms [Recovered/Resolved]
  - Terminal state [Recovered/Resolved]
  - Malaise [Recovered/Resolved]
  - Vision blurred [Unknown]
  - Renal failure [Recovered/Resolved]
  - Pneumonia [Recovered/Resolved]

NARRATIVE: CASE EVENT DATE: 20180908
